FAERS Safety Report 20526390 (Version 1)
Quarter: 2022Q1

REPORT INFORMATION
  Report Type: Spontaneous
  Country: US (occurrence: US)
  Receive Date: 20220228
  Receipt Date: 20220228
  Transmission Date: 20220423
  Serious: No
  Sender: FDA-Public Use
  Company Number: US-CELGENE-USA-20220206321

PATIENT
  Sex: Female

DRUGS (2)
  1. INREBIC [Suspect]
     Active Substance: FEDRATINIB HYDROCHLORIDE
     Indication: Myelofibrosis
     Dosage: 200 MILLIGRAM
     Route: 048
     Dates: start: 20210430
  2. PRASTERONE [Concomitant]
     Active Substance: PRASTERONE
     Indication: Product used for unknown indication
     Route: 065

REACTIONS (2)
  - Haemoglobin abnormal [Not Recovered/Not Resolved]
  - Blood creatine increased [Unknown]
